FAERS Safety Report 24718840 (Version 1)
Quarter: 2024Q4

REPORT INFORMATION
  Report Type: Spontaneous
  Country: CZ (occurrence: CZ)
  Receive Date: 20241210
  Receipt Date: 20241210
  Transmission Date: 20250115
  Serious: Yes (Other)
  Sender: RANBAXY
  Company Number: CZ-SUN PHARMACEUTICAL INDUSTRIES LTD-2024RR-483820

PATIENT
  Age: 75 Year
  Sex: Female

DRUGS (4)
  1. CITALOPRAM [Interacting]
     Active Substance: CITALOPRAM
     Indication: Product used for unknown indication
     Dosage: 20 MILLIGRAM  TBL. P.O. 1-1/2-0
     Route: 048
  2. OMEPRAZOLE [Interacting]
     Active Substance: OMEPRAZOLE
     Indication: Product used for unknown indication
     Dosage: 20 MILLIGRAM 0-0
     Route: 048
  3. QUETIAPINE [Suspect]
     Active Substance: QUETIAPINE
     Indication: Product used for unknown indication
     Dosage: 100 MILLIGRAM  P.O. 0-1-1
     Route: 048
  4. TIAPRIDE [Suspect]
     Active Substance: TIAPRIDE
     Indication: Product used for unknown indication
     Dosage: 100 MILLIGRAM TBL. P.O. 1/2-1/2-1/2
     Route: 048

REACTIONS (4)
  - Hyponatraemia [Recovered/Resolved]
  - Mineral deficiency [Recovered/Resolved]
  - Electrocardiogram QT interval [Recovered/Resolved]
  - Drug interaction [Recovered/Resolved]
